FAERS Safety Report 4941600-X (Version None)
Quarter: 2006Q1

REPORT INFORMATION
  Report Type: 
  Country: None (occurrence: None)
  Receive Date: 20060308
  Receipt Date: 20060223
  Transmission Date: 20060701
  Serious: Yes (Hospitalization)
  Sender: FDA-Public Use
  Company Number: 2006027423

PATIENT
  Age: 64 Year
  Sex: Male
  Weight: 120 kg

DRUGS (11)
  1. CLINDAMYCIN HCL [Suspect]
     Indication: CELLULITIS
     Dosage: 4 DF (1 IN 1 D), ORAL
     Route: 048
     Dates: start: 20060125, end: 20060201
  2. CLINDAMYCIN HCL [Suspect]
     Indication: OSTEITIS
     Dosage: 4 DF (1 IN 1 D), ORAL
     Route: 048
     Dates: start: 20060125, end: 20060201
  3. TRIMETHOPRIME, SULFAMETHOXAZOLE (SULFAMETHOXAZOLE, TRIMETHOPRIM) [Suspect]
     Indication: CELLULITIS
     Dosage: 3 DF (3 IN 1 D), ORAL
     Route: 048
     Dates: start: 20060125, end: 20060201
  4. TRIMETHOPRIME, SULFAMETHOXAZOLE (SULFAMETHOXAZOLE, TRIMETHOPRIM) [Suspect]
     Indication: OSTEITIS
     Dosage: 3 DF (3 IN 1 D), ORAL
     Route: 048
     Dates: start: 20060125, end: 20060201
  5. RAMIPRIL [Concomitant]
  6. FUROSEMIDE [Concomitant]
  7. PIRIBEDIL (PIRIBEDIL) [Concomitant]
  8. OMEPRAZOLE [Concomitant]
  9. INSULINE ASPARTE (INSULIN) [Concomitant]
  10. SALBUTAMOL SULFATE (SALBUTAMOL SULFATE) [Concomitant]
  11. ACIDE CLAVULANIQUE SEL DE K; TICAR (CLAVULANATE POTASSIUM) [Concomitant]

REACTIONS (2)
  - BLOOD CREATININE INCREASED [None]
  - RENAL FAILURE [None]
